FAERS Safety Report 23846040 (Version 2)
Quarter: 2024Q3

REPORT INFORMATION
  Report Type: Spontaneous
  Country: PK (occurrence: PK)
  Receive Date: 20240512
  Receipt Date: 20240709
  Transmission Date: 20241017
  Serious: Yes (Other)
  Sender: AMGEN
  Company Number: PK-PFIZER INC-2020457870

PATIENT
  Age: 37 Year
  Sex: Male
  Weight: 118 kg

DRUGS (16)
  1. ENBREL [Suspect]
     Active Substance: BENZYL ALCOHOL\ETANERCEPT
     Indication: Ankylosing spondylitis
     Dosage: UNK
     Route: 065
     Dates: start: 20161014, end: 2016
  2. ENBREL [Suspect]
     Active Substance: BENZYL ALCOHOL\ETANERCEPT
     Dosage: 50 MG, WEEKLY (ONCE WEEKLY (ON EVERY FRIDAY) FOR 16 WEEKS)
     Route: 058
  3. ENBREL [Suspect]
     Active Substance: BENZYL ALCOHOL\ETANERCEPT
     Dosage: 50 MG, MONTHLY (ONCE A MONTH (4 TIMES), ON THE 1ST OF EVERY MONTH)
     Route: 058
     Dates: start: 20220913
  4. ARCOX [Concomitant]
     Indication: Product used for unknown indication
     Dosage: 1 DF (1 TABLET AFTER MEAL)
     Route: 065
  5. NUBEROL [Concomitant]
     Indication: Product used for unknown indication
     Dosage: UNK (1+1+1)
     Route: 065
  6. Calcium + Vitamin D3 + K2 [Concomitant]
     Indication: Product used for unknown indication
     Dosage: 1 DF (1 TABLET FOR 3 MONTHS)
     Route: 065
  7. BUPROPION HYDROCHLORIDE [Concomitant]
     Active Substance: BUPROPION HYDROCHLORIDE
     Indication: Product used for unknown indication
     Dosage: 150 MG ONCE DAILY FOR 6 WEEKS THEN TWICE DAILY FOR 9 WEEKS
     Route: 048
  8. PANADOL [Concomitant]
     Active Substance: ACETAMINOPHEN
     Indication: Pain
     Dosage: 2+2+2 WHEN NEEDED FOR PAIN
     Route: 048
  9. PANADOL [Concomitant]
     Active Substance: ACETAMINOPHEN
     Dosage: 2+2+2 REGULAR FOR 10 DAYS FOR SEVER PAIN AFTER LUNCH
     Route: 048
  10. ETORICOXIB [Concomitant]
     Active Substance: ETORICOXIB
     Dosage: 90 MG
     Route: 048
  11. ETORICOXIB [Concomitant]
     Active Substance: ETORICOXIB
     Dosage: 120 MG FOR 10 DAYS
     Route: 065
  12. Risek [Concomitant]
     Indication: Product used for unknown indication
     Dosage: 40 MG BEFORE BREAKFAST
     Route: 048
  13. CAC [Concomitant]
     Indication: Product used for unknown indication
     Dosage: UNK, DAILY (1 FOR 2 MONTHS FOR BONES EVERY DAY)
     Route: 065
  14. INDROP D [Concomitant]
     Indication: Product used for unknown indication
     Dosage: UNK (MIX IN WATER OR MILK )
     Route: 048
  15. INDROP D [Concomitant]
     Dosage: 20000 IU/ 01 CAP AFTER EVERY 04 MONTH
     Route: 065
  16. ZESTRIL [Concomitant]
     Active Substance: LISINOPRIL
     Indication: Product used for unknown indication
     Dosage: 5 MG, CYCLIC (EVERY MORNING)
     Route: 065

REACTIONS (6)
  - Lumbar vertebral fracture [Unknown]
  - Fall [Unknown]
  - C-reactive protein increased [Unknown]
  - Blood pressure diastolic increased [Unknown]
  - Depression [Unknown]
  - Off label use [Unknown]

NARRATIVE: CASE EVENT DATE: 20220913
